FAERS Safety Report 25852842 (Version 2)
Quarter: 2025Q4

REPORT INFORMATION
  Report Type: Spontaneous
  Country: EU (occurrence: EU)
  Receive Date: 20250926
  Receipt Date: 20251008
  Transmission Date: 20260117
  Serious: Yes (Other)
  Sender: PFIZER
  Company Number: None

PATIENT
  Age: 81 Year
  Sex: Male

DRUGS (8)
  1. CLINDAMYCIN [Suspect]
     Active Substance: CLINDAMYCIN
     Indication: Purulence
     Dosage: 900 MG, 1X/DAY; 3 CAPSULES (MORNING, AFTERNOON, AND EVENING)
     Dates: start: 20250825
  2. PRADAXA [Concomitant]
     Active Substance: DABIGATRAN ETEXILATE MESYLATE
     Dosage: OVER A LONGER PERIOD OF TIME
  3. BISOPROLOL FUMARATE [Concomitant]
     Active Substance: BISOPROLOL FUMARATE
     Dosage: OVER A LONGER PERIOD OF TIME
  4. ATORVASTATIN CALCIUM\EZETIMIBE [Concomitant]
     Active Substance: ATORVASTATIN CALCIUM\EZETIMIBE
     Dosage: OVER A LONGER PERIOD OF TIME
  5. FINASTERIDE [Concomitant]
     Active Substance: FINASTERIDE
     Dosage: OVER A LONGER PERIOD OF TIME
  6. JARDIANCE [Concomitant]
     Active Substance: EMPAGLIFLOZIN
     Dosage: OVER A LONGER PERIOD OF TIME
  7. VALSARTAN [Concomitant]
     Active Substance: VALSARTAN
     Dosage: OVER A LONGER PERIOD OF TIME
  8. METILDIGOXIN [Concomitant]
     Active Substance: METILDIGOXIN
     Dosage: OVER A LONGER PERIOD OF TIME

REACTIONS (3)
  - Arthralgia [Not Recovered/Not Resolved]
  - Nausea [Not Recovered/Not Resolved]
  - Dizziness postural [Not Recovered/Not Resolved]

NARRATIVE: CASE EVENT DATE: 20250831
